FAERS Safety Report 8515343-X (Version None)
Quarter: 2012Q3

REPORT INFORMATION
  Report Type: 
  Country: None (occurrence: None)
  Receive Date: 20120705
  Receipt Date: 20120618
  Transmission Date: 20120928
  Serious: Yes (Hospitalization)
  Sender: FDA-Public Use
  Company Number: 2012000153

PATIENT
  Age: 72 Year
  Sex: Male

DRUGS (8)
  1. BISOPROLOL FUMARATE [Suspect]
     Indication: CARDIOMYOPATHY
  2. BUMETANIDE [Suspect]
     Indication: PRODUCT USED FOR UNKNOWN INDICATION
  3. MOLSIDOMINE (MOLSIDOMINE) [Suspect]
     Indication: PRODUCT USED FOR UNKNOWN INDICATION
  4. PREVISCAN (FLUINDIONE) [Suspect]
     Indication: PRODUCT USED FOR UNKNOWN INDICATION
  5. CRESTOR [Suspect]
     Indication: HYPERCHOLESTEROLAEMIA
  6. ALLOPURINOL [Suspect]
     Indication: PRODUCT USED FOR UNKNOWN INDICATION
  7. STAGMID (METFORMIN EMBONATE) [Suspect]
     Indication: PRODUCT USED FOR UNKNOWN INDICATION
  8. ACEON [Suspect]
     Indication: PRODUCT USED FOR UNKNOWN INDICATION
     Dosage: ORAL
     Route: 048

REACTIONS (3)
  - BRONCHIAL DISORDER [None]
  - TRACHEITIS [None]
  - PLEURAL EFFUSION [None]
